FAERS Safety Report 21438997 (Version 3)
Quarter: 2022Q4

REPORT INFORMATION
  Report Type: Spontaneous
  Country: JP (occurrence: JP)
  Receive Date: 20221011
  Receipt Date: 20221213
  Transmission Date: 20230113
  Serious: Yes (Hospitalization, Other)
  Sender: FDA-Public Use
  Company Number: JP-ASTELLAS-2022JP014780

PATIENT
  Age: 79 Year
  Sex: Female

DRUGS (1)
  1. PROGRAF [Suspect]
     Active Substance: TACROLIMUS
     Indication: Myasthenia gravis
     Dosage: 3 MG/DAY, UNKNOWN FREQ.
     Route: 048

REACTIONS (2)
  - Pneumonia aspiration [Unknown]
  - Condition aggravated [Unknown]
